FAERS Safety Report 6409073-8 (Version None)
Quarter: 2009Q4

REPORT INFORMATION
  Report Type: 
  Country: None (occurrence: None)
  Receive Date: 20091019
  Receipt Date: 20091019
  Transmission Date: 20100525
  Serious: Yes (Life-Threatening, Hospitalization)
  Sender: FDA-Public Use
  Company Number: None

PATIENT
  Age: 34 Year
  Sex: Female
  Weight: 65.318 kg

DRUGS (1)
  1. NUVARING [Suspect]
     Indication: CONTRACEPTION
     Dosage: ONE UNIT MONTHLY VAG
     Route: 067
     Dates: start: 20060701, end: 20090722

REACTIONS (2)
  - PULMONARY EMBOLISM [None]
  - THROMBOSIS [None]
